FAERS Safety Report 18551339 (Version 4)
Quarter: 2022Q4

REPORT INFORMATION
  Report Type: Spontaneous
  Country: US (occurrence: US)
  Receive Date: 20201126
  Receipt Date: 20221107
  Transmission Date: 20230113
  Serious: No
  Sender: FDA-Public Use
  Company Number: US-PFIZER INC-2020468570

PATIENT
  Sex: Female

DRUGS (10)
  1. DOCETAXEL [Suspect]
     Active Substance: DOCETAXEL
     Indication: Breast cancer stage II
     Dosage: UNK, CYCLIC (6 CYCLE)
     Dates: start: 20151111, end: 20160301
  2. DOCETAXEL [Suspect]
     Active Substance: DOCETAXEL
     Dosage: 5040CGY IN 28FX AT 180CGY/FX (6 CYCLE)
     Dates: start: 20160418, end: 20160525
  3. TAXOTERE [Concomitant]
     Active Substance: DOCETAXEL
     Indication: Chemotherapy
     Dosage: UNK, CYCLIC (6 CYCLE)
     Dates: start: 20151111, end: 201603
  4. TAXOTERE [Concomitant]
     Active Substance: DOCETAXEL
     Dosage: 5040CGY IN 28FX AT 180CGY/FX (6 CYCLE)
     Dates: start: 20160418, end: 20160525
  5. CARBOPLATIN [Concomitant]
     Active Substance: CARBOPLATIN
     Indication: Chemotherapy
     Dosage: UNK, CYCLIC (6 CYCLE)
     Dates: start: 20151111, end: 201603
  6. CARBOPLATIN [Concomitant]
     Active Substance: CARBOPLATIN
     Dosage: 5040CGY IN 28FX AT 180CGY/FX (6 CYCLE)
     Dates: start: 20160418, end: 20160525
  7. HERCEPTIN [Concomitant]
     Active Substance: TRASTUZUMAB
     Indication: Chemotherapy
     Dosage: UNK, CYCLIC (6 CYCLES)
     Dates: start: 20151111, end: 201603
  8. HERCEPTIN [Concomitant]
     Active Substance: TRASTUZUMAB
     Dosage: 5040CGY IN 28FX AT 180CGY/FX, CYCLIC (6 CYCLES)
     Dates: start: 20160418, end: 20160525
  9. PERTUZUMAB [Concomitant]
     Active Substance: PERTUZUMAB
     Indication: Chemotherapy
     Dosage: UNK, CYCLIC (6 CYCLIC)
     Dates: start: 20151111, end: 201603
  10. PERTUZUMAB [Concomitant]
     Active Substance: PERTUZUMAB
     Dosage: 5040CGY IN 28FX AT 180CGY/FX, CYCLIC (6 CYCLIC)
     Dates: start: 20160418, end: 20160525

REACTIONS (10)
  - Eye injury [Unknown]
  - Lacrimation increased [Not Recovered/Not Resolved]
  - Eyelid margin crusting [Unknown]
  - Ocular discomfort [Unknown]
  - Dry eye [Unknown]
  - Eye irritation [Unknown]
  - Eye pruritus [Unknown]
  - Ocular hyperaemia [Unknown]
  - Dacryostenosis acquired [Unknown]
  - Lacrimal structure injury [Not Recovered/Not Resolved]
